FAERS Safety Report 9188328 (Version 2)
Quarter: 2013Q2

REPORT INFORMATION
  Report Type: Spontaneous
  Country: CN (occurrence: CN)
  Receive Date: 20130325
  Receipt Date: 20130528
  Transmission Date: 20140414
  Serious: Yes (Death)
  Sender: FDA-Public Use
  Company Number: CN-BAXTER-2013BAX010404

PATIENT
  Age: 75 Year
  Sex: Male
  Weight: 55 kg

DRUGS (8)
  1. FLEXBUMIN 25% [Suspect]
     Indication: HYPOPROTEINAEMIA
     Route: 042
     Dates: start: 20130305, end: 20130305
  2. 0.9% SODIUM CHLORIDE INJECTION [Suspect]
     Indication: HYPOPROTEINAEMIA
     Route: 042
  3. COMPOUND AMINO ACID INJECTION (18AA) [Concomitant]
     Indication: LUNG ABSCESS
     Route: 042
     Dates: start: 20130215, end: 20130305
  4. MOXIFLOXACIN [Concomitant]
     Indication: LUNG ABSCESS
     Route: 048
     Dates: start: 20130215, end: 20130305
  5. MEROPENEM [Concomitant]
     Indication: LUNG ABSCESS
     Route: 042
     Dates: start: 20130303, end: 20130305
  6. ORNIDAZOLE [Concomitant]
     Indication: LUNG ABSCESS
     Route: 042
     Dates: start: 20130217, end: 20130305
  7. ORNIDAZOLE [Concomitant]
     Indication: ANTI-INFECTIVE THERAPY
     Route: 065
  8. CEFOXITIN [Concomitant]
     Indication: ANTI-INFECTIVE THERAPY
     Route: 065

REACTIONS (16)
  - Left ventricular failure [Fatal]
  - Lung abscess [Not Recovered/Not Resolved]
  - Bronchitis chronic [Not Recovered/Not Resolved]
  - Emphysema [Not Recovered/Not Resolved]
  - Chest discomfort [Not Recovered/Not Resolved]
  - Asthma [Not Recovered/Not Resolved]
  - Dyspnoea [Not Recovered/Not Resolved]
  - Chills [Not Recovered/Not Resolved]
  - Rales [Not Recovered/Not Resolved]
  - Wheezing [Not Recovered/Not Resolved]
  - Sinus tachycardia [Not Recovered/Not Resolved]
  - Bundle branch block right [Not Recovered/Not Resolved]
  - Ventricular dysfunction [Not Recovered/Not Resolved]
  - Breath sounds abnormal [Not Recovered/Not Resolved]
  - Loss of consciousness [Not Recovered/Not Resolved]
  - Blood pressure decreased [Not Recovered/Not Resolved]
